FAERS Safety Report 7223269-7 (Version None)
Quarter: 2011Q1

REPORT INFORMATION
  Report Type: 
  Country: None (occurrence: None)
  Receive Date: 20110112
  Receipt Date: 20100330
  Transmission Date: 20110831
  Serious: No
  Sender: FDA-Public Use
  Company Number: US-ALLERGAN-1004152US

PATIENT
  Age: 70 Year
  Sex: Female

DRUGS (3)
  1. RESTASIS [Suspect]
     Indication: DRY EYE
     Dosage: UNK, BID
     Route: 047
     Dates: start: 20100301
  2. REFRESH PLUS [Concomitant]
     Dosage: UNK
  3. REFRESH P.M. [Concomitant]
     Dosage: UNK

REACTIONS (3)
  - PHOTOPHOBIA [None]
  - EYE IRRITATION [None]
  - INCORRECT DOSE ADMINISTERED [None]
